FAERS Safety Report 15397252 (Version 3)
Quarter: 2019Q3

REPORT INFORMATION
  Report Type: Spontaneous
  Country: CA (occurrence: CA)
  Receive Date: 20180918
  Receipt Date: 20190704
  Transmission Date: 20191004
  Serious: Yes (Other)
  Sender: FDA-Public Use
  Company Number: CA-TEVA-2018-CA-954520

PATIENT
  Age: 20 Month
  Sex: Female

DRUGS (6)
  1. PROPRANOLOL [Suspect]
     Active Substance: PROPRANOLOL HYDROCHLORIDE
     Indication: NODAL ARRHYTHMIA
     Dosage: AT THE AGE OF 3 YEAR 11 MONTHS, DRUG WAS DISCONTINUED LATER
     Route: 065
  2. DIGOXIN. [Concomitant]
     Active Substance: DIGOXIN
     Indication: NODAL ARRHYTHMIA
     Route: 065
  3. PROPRANOLOL [Suspect]
     Active Substance: PROPRANOLOL HYDROCHLORIDE
     Indication: NODAL ARRHYTHMIA
     Dosage: AT THE AGE BETWEEN 3 YEAR 5 MONTHS TO 3 YEAR 11 MONTHS, DOSAGE WAS REDUCED FURTHER LATER
     Route: 065
  4. PROPRANOLOL [Suspect]
     Active Substance: PROPRANOLOL HYDROCHLORIDE
     Indication: NODAL ARRHYTHMIA
     Dosage: THE DOSE WAS REDUCED LATER
     Route: 065
  5. GLUCAGON. [Suspect]
     Active Substance: GLUCAGON
     Dosage: EXCESSIVE DOSE GIVEN BY ERROR
     Route: 065
  6. AMIODARONE [Concomitant]
     Active Substance: AMIODARONE
     Indication: NODAL ARRHYTHMIA
     Route: 065

REACTIONS (4)
  - Urine ketone body present [Unknown]
  - Extra dose administered [Unknown]
  - Hypoglycaemia [Recovered/Resolved]
  - Hypoglycaemic seizure [Unknown]
